FAERS Safety Report 7501836-0 (Version None)
Quarter: 2011Q2

REPORT INFORMATION
  Report Type: 
  Country: None (occurrence: None)
  Receive Date: 20110525
  Receipt Date: 20110511
  Transmission Date: 20111010
  Serious: Yes (Hospitalization, Other)
  Sender: FDA-Public Use
  Company Number: US-BAYER-201038498NA

PATIENT
  Sex: Female
  Weight: 83.9 kg

DRUGS (2)
  1. YASMIN [Suspect]
     Indication: PRODUCT USED FOR UNKNOWN INDICATION
     Dosage: UNK UNK, QD
     Route: 048
     Dates: start: 20070501, end: 20071101
  2. YASMIN [Suspect]
     Dosage: UNK
     Dates: start: 20070601

REACTIONS (1)
  - DEEP VEIN THROMBOSIS [None]
